FAERS Safety Report 4784432-8 (Version None)
Quarter: 2005Q3

REPORT INFORMATION
  Report Type: 
  Country: None (occurrence: None)
  Receive Date: 20050929
  Receipt Date: 20050928
  Transmission Date: 20060218
  Serious: Yes (Hospitalization)
  Sender: FDA-Public Use
  Company Number: DL2005378

PATIENT
  Age: 29 Year
  Sex: Female
  Weight: 104.3273 kg

DRUGS (1)
  1. MIFEPRISTONE TABLETS, 200 MG (DANCO LABS) [Suspect]
     Indication: ABORTION INDUCED
     Dosage: 200 MG, ORAL
     Route: 048
     Dates: start: 20050714

REACTIONS (7)
  - ABORTION INFECTED [None]
  - DRUG EXPOSURE DURING PREGNANCY [None]
  - DYSURIA [None]
  - MUSCLE SPASMS [None]
  - NECROSIS [None]
  - PROCEDURAL COMPLICATION [None]
  - UTERINE DISORDER [None]
